FAERS Safety Report 15939473 (Version 3)
Quarter: 2019Q1

REPORT INFORMATION
  Report Type: Report from Study
  Country: US (occurrence: US)
  Receive Date: 20190208
  Receipt Date: 20190308
  Transmission Date: 20190417
  Serious: Yes (Hospitalization, Other)
  Sender: FDA-Public Use
  Company Number: US-SA-2019SA026715

PATIENT
  Age: 48 Year
  Sex: Male
  Weight: 117 kg

DRUGS (39)
  1. ASPIRIN (E.C.) [Concomitant]
     Active Substance: ASPIRIN
     Dosage: UNK
     Dates: start: 20171113
  2. ESCITALOPRAM [Concomitant]
     Active Substance: ESCITALOPRAM OXALATE
     Dosage: 10 MG, QD
     Route: 048
     Dates: start: 20190114
  3. METHYLPREDNISOLONE SODIUM SUCCINATE. [Concomitant]
     Active Substance: METHYLPREDNISOLONE SODIUM SUCCINATE
     Dosage: UNK
     Dates: start: 20180802
  4. NITROFURANTOIN MACROCRYSTALS [Concomitant]
     Active Substance: NITROFURANTOIN
     Dosage: 100 MG
     Dates: start: 20180316
  5. TESTOSTERONE CYPIONATE. [Concomitant]
     Active Substance: TESTOSTERONE CYPIONATE
     Dosage: 200 MG/ML
     Route: 030
     Dates: start: 20181106
  6. CLOTRIMAZOLE / BETAMETH [Concomitant]
     Active Substance: BETAMETHASONE DIPROPIONATE\CLOTRIMAZOLE
     Dosage: UNK
  7. IBU [Concomitant]
     Active Substance: IBUPROFEN
     Dosage: 600 MG
     Dates: start: 20181125
  8. LEVITRA [Concomitant]
     Active Substance: VARDENAFIL HYDROCHLORIDE TRIHYDRATE
     Dosage: 20 MG, QD,30DAYS
     Route: 048
     Dates: start: 20180514
  9. ALEMTUZUMAB [Suspect]
     Active Substance: ALEMTUZUMAB
     Dosage: UNK UNK, UNK
     Route: 041
     Dates: start: 20190121, end: 20190125
  10. CIALIS [Concomitant]
     Active Substance: TADALAFIL
     Dosage: UNK
     Dates: start: 20171113
  11. CLINDAMYCIN HCL [Concomitant]
     Active Substance: CLINDAMYCIN HYDROCHLORIDE
     Dosage: UNK
     Dates: start: 20180116
  12. DIPHENHYDRAMINE. [Concomitant]
     Active Substance: DIPHENHYDRAMINE
     Dosage: 50 MG/ML
     Dates: start: 20180802
  13. HYDROCODONE/ACETAMINOPHEN [Concomitant]
     Active Substance: ACETAMINOPHEN\HYDROCODONE
     Dosage: 5MG-300MG
     Dates: start: 20180116
  14. LEVOFLOXACIN. [Concomitant]
     Active Substance: LEVOFLOXACIN
     Dosage: UNK
     Dates: start: 20180808
  15. VASCEPA [Concomitant]
     Active Substance: ICOSAPENT ETHYL
     Dosage: UNK
     Dates: start: 20171113
  16. ACYCLOVIR AKRI [Concomitant]
     Dosage: UNK UNK, BID
     Route: 048
     Dates: start: 20190111
  17. AMOXICILINA CLAV [AMOXICILLIN;CLAVULANATE POTASSIUM] [Concomitant]
     Dosage: UNK
     Dates: start: 20181227
  18. LOSARTAN. [Concomitant]
     Active Substance: LOSARTAN
     Dosage: UNK
     Dates: start: 20171113
  19. LOSARTAN. [Concomitant]
     Active Substance: LOSARTAN
     Dosage: 50 MG
     Dates: start: 20181226
  20. NITROFURANTOIN MACROCRYSTALS [Concomitant]
     Active Substance: NITROFURANTOIN
     Dosage: 50 UNK
     Dates: start: 20181026
  21. ALPRAZOLAM. [Concomitant]
     Active Substance: ALPRAZOLAM
     Dosage: 0.25 MG
     Dates: start: 20180507
  22. CEPHALEXIN AMEL [Concomitant]
     Dosage: 500 MG
     Dates: start: 20181206
  23. HYDROCODONE/ACETAMINOPHEN [Concomitant]
     Active Substance: ACETAMINOPHEN\HYDROCODONE
     Dosage: 5MG-300MG
     Dates: start: 20181128
  24. IBU [Concomitant]
     Active Substance: IBUPROFEN
     Dosage: 800 UNK
     Dates: start: 20190211
  25. METHYLPREDNISOLONE. [Concomitant]
     Active Substance: METHYLPREDNISOLONE
     Dosage: UNK
     Dates: start: 20181128
  26. OMEPRAZOLE. [Concomitant]
     Active Substance: OMEPRAZOLE
     Dosage: CAPSULE
     Dates: start: 20190114
  27. RANITIDINE. [Concomitant]
     Active Substance: RANITIDINE
     Dosage: 150 MG, QD,FOR 30 DAYS
     Dates: start: 20190111
  28. SULFAMETHOXAZOLE AND TRIMETHOPRIM [Concomitant]
     Active Substance: SULFAMETHOXAZOLE\TRIMETHOPRIM
     Dosage: UNK
     Dates: start: 20190211
  29. VASCEPA [Concomitant]
     Active Substance: ICOSAPENT ETHYL
     Dosage: , CAPSULE1 G
     Dates: start: 20180731
  30. VITAMIN D [Concomitant]
     Active Substance: CHOLECALCIFEROL
  31. BACLOFEN. [Concomitant]
     Active Substance: BACLOFEN
     Dosage: UNK
     Dates: start: 20171113
  32. ZOLPIDEM [Concomitant]
     Active Substance: ZOLPIDEM\ZOLPIDEM TARTRATE
     Dosage: 5 MG
     Dates: start: 20180518
  33. BACLOFEN. [Concomitant]
     Active Substance: BACLOFEN
     Dosage: UNK, Q4H
     Route: 048
     Dates: start: 20190211
  34. CEFDINIR. [Concomitant]
     Active Substance: CEFDINIR
     Dosage: 300 MG
     Dates: start: 20181123
  35. NITROFURANTOIN MACROCRYSTALS [Concomitant]
     Active Substance: NITROFURANTOIN
     Dosage: UNK
     Dates: start: 20181126
  36. HYDROXYZINE HCL [Concomitant]
     Active Substance: HYDROXYZINE HYDROCHLORIDE
     Dosage: 50 MG FOR 30 DAYS
     Route: 048
     Dates: start: 20190111
  37. OMEPRAZOLE. [Concomitant]
     Active Substance: OMEPRAZOLE
     Dosage: UNK
     Dates: start: 20171113
  38. ROSUVASTATIN. [Concomitant]
     Active Substance: ROSUVASTATIN
     Dosage: 10 MG
     Dates: start: 20181230
  39. VESICARE [Concomitant]
     Active Substance: SOLIFENACIN SUCCINATE
     Dosage: 10 MG
     Route: 048
     Dates: start: 20181226

REACTIONS (16)
  - Bronchiolitis [Unknown]
  - Arthralgia [Unknown]
  - Urinary tract infection [Unknown]
  - Headache [Not Recovered/Not Resolved]
  - Fatigue [Not Recovered/Not Resolved]
  - Laziness [Not Recovered/Not Resolved]
  - Gait inability [Unknown]
  - Cystitis [Not Recovered/Not Resolved]
  - Prostatitis [Unknown]
  - Somnolence [Not Recovered/Not Resolved]
  - Pain in extremity [Not Recovered/Not Resolved]
  - Pyrexia [Unknown]
  - Dysphonia [Not Recovered/Not Resolved]
  - Urosepsis [Unknown]
  - Nausea [Unknown]
  - Erectile dysfunction [Unknown]
